FAERS Safety Report 4891000-6 (Version None)
Quarter: 2005Q4

REPORT INFORMATION
  Report Type: 
  Country: None (occurrence: None)
  Receive Date: 20051220
  Receipt Date: 20050822
  Transmission Date: 20060501
  Serious: Yes (Other)
  Sender: FDA-Public Use
  Company Number: 415130

PATIENT
  Age: 68 Year
  Sex: Female
  Weight: 56.2 kg

DRUGS (4)
  1. BONIVA [Suspect]
     Indication: PROPHYLAXIS
     Dosage: 150 MG 1 PER MONTH ORAL
     Route: 048
     Dates: start: 20050731
  2. LEVOXYL [Concomitant]
  3. CALCIUM (CALCIUM) [Concomitant]
  4. VITAMIN (VITAMIN NOS) [Concomitant]

REACTIONS (1)
  - NIPPLE DISORDER [None]
